FAERS Safety Report 8001367-8 (Version None)
Quarter: 2011Q4

REPORT INFORMATION
  Report Type: 
  Country: None (occurrence: None)
  Receive Date: 20111222
  Receipt Date: 20111219
  Transmission Date: 20120403
  Serious: Yes (Other)
  Sender: FDA-Public Use
  Company Number: US-PFIZER INC-2011308274

PATIENT
  Sex: Female
  Weight: 83.9 kg

DRUGS (7)
  1. METFORMIN [Concomitant]
     Dosage: 500 MG, 2X/DAY
  2. NEURONTIN [Suspect]
     Indication: HYPERSENSITIVITY
     Dosage: 600 MG, 3X/DAY
     Route: 048
     Dates: start: 20110101
  3. ESTRADIOL [Concomitant]
     Dosage: 1 MG, 1X/DAY
  4. NEURONTIN [Suspect]
     Dosage: UNK
     Route: 048
  5. VYTORIN [Concomitant]
     Dosage: UNK, 1X/DAY
  6. AVAPRO [Concomitant]
     Dosage: 300 MG, 1X/DAY
  7. CYMBALTA [Concomitant]
     Dosage: 60 MG, 1X/DAY

REACTIONS (3)
  - DISTURBANCE IN ATTENTION [None]
  - MENTAL IMPAIRMENT [None]
  - MEMORY IMPAIRMENT [None]
